FAERS Safety Report 7318970-0 (Version None)
Quarter: 2011Q1

REPORT INFORMATION
  Report Type: 
  Country: None (occurrence: None)
  Receive Date: 20110215
  Receipt Date: 20110131
  Transmission Date: 20110831
  Serious: Yes (Hospitalization)
  Sender: FDA-Public Use
  Company Number: 025407

PATIENT

DRUGS (2)
  1. LACOSAMIDE [Suspect]
     Dosage: 300 MG, 100 MG AM AND 200 MG PM
     Dates: end: 20100301
  2. KEPPRA [Suspect]
     Dosage: 250 MG BID, 750 MG BID

REACTIONS (9)
  - ALANINE AMINOTRANSFERASE INCREASED [None]
  - SUBCUTANEOUS ABSCESS [None]
  - PNEUMONIA [None]
  - ASPARTATE AMINOTRANSFERASE INCREASED [None]
  - BLOOD ALKALINE PHOSPHATASE INCREASED [None]
  - SEPSIS [None]
  - CONVULSION [None]
  - WHITE BLOOD CELL COUNT DECREASED [None]
  - HEPATITIS [None]
